FAERS Safety Report 8117717-8 (Version None)
Quarter: 2012Q1

REPORT INFORMATION
  Report Type: 
  Country: None (occurrence: None)
  Receive Date: 20120203
  Receipt Date: 20120203
  Transmission Date: 20120608
  Serious: Yes (Hospitalization)
  Sender: FDA-Public Use
  Company Number: None

PATIENT
  Sex: Female
  Weight: 17.2 kg

DRUGS (3)
  1. TEMOZOLOMIDE [Suspect]
     Dosage: 290 MG
     Dates: end: 20110725
  2. VINCRISTINE SULFATE [Suspect]
     Dosage: 2.28 MG
     Dates: end: 20110804
  3. IRINOTECAN HCL [Suspect]
     Dosage: 145 MG
     Dates: end: 20110725

REACTIONS (5)
  - NEUTROPENIA [None]
  - SEPSIS [None]
  - ACINETOBACTER TEST POSITIVE [None]
  - DEVICE RELATED SEPSIS [None]
  - FEBRILE CONVULSION [None]
